FAERS Safety Report 5696095-8 (Version None)
Quarter: 2008Q2

REPORT INFORMATION
  Report Type: 
  Country: None (occurrence: None)
  Receive Date: 20080407
  Receipt Date: 20080403
  Transmission Date: 20081010
  Serious: Yes (Hospitalization)
  Sender: FDA-Public Use
  Company Number: B0515352A

PATIENT
  Age: 5 Year
  Sex: Female
  Weight: 20 kg

DRUGS (2)
  1. LAMICTAL [Suspect]
     Indication: EPILEPSY
     Route: 048
     Dates: start: 20080301, end: 20080331
  2. NO CONCURRENT MEDICATION [Concomitant]

REACTIONS (5)
  - ASTHENIA [None]
  - HALLUCINATION [None]
  - NAUSEA [None]
  - OVERDOSE [None]
  - REFUSAL OF TREATMENT BY PATIENT [None]
